FAERS Safety Report 6756945-0 (Version None)
Quarter: 2010Q2

REPORT INFORMATION
  Report Type: 
  Country: None (occurrence: None)
  Receive Date: 20100604
  Receipt Date: 20100524
  Transmission Date: 20101027
  Serious: Yes (Other)
  Sender: FDA-Public Use
  Company Number: GB-WATSON-2010-07302

PATIENT

DRUGS (2)
  1. SIMVASTATIN [Suspect]
     Indication: HYPERLIPIDAEMIA
     Dosage: 10-80 MG DAILY
     Route: 048
  2. PRAVASTATIN SODIUM [Suspect]
     Indication: HYPERLIPIDAEMIA
     Dosage: 10-40 MG DAILY
     Route: 048

REACTIONS (4)
  - CATARACT [None]
  - HEPATIC FUNCTION ABNORMAL [None]
  - MYOPATHY [None]
  - RENAL FAILURE ACUTE [None]
